FAERS Safety Report 8954563 (Version 1)
Quarter: 2012Q4

REPORT INFORMATION
  Report Type: Spontaneous
  Country: US (occurrence: None)
  Receive Date: 20121205
  Receipt Date: 20121205
  Transmission Date: 20130627
  Serious: No
  Sender: FDA-Public Use
  Company Number: None

PATIENT
  Age: 55 Year
  Sex: Female
  Weight: 104.78 kg

DRUGS (1)
  1. CITALOPRAM [Suspect]
     Indication: DEPRESSION
     Dosage: Citalopram 30 mg qd PO
     Route: 048
     Dates: start: 200803, end: 201008

REACTIONS (1)
  - No therapeutic response [None]
